FAERS Safety Report 4301296-7 (Version None)
Quarter: 2004Q1

REPORT INFORMATION
  Report Type: 
  Country: None (occurrence: None)
  Receive Date: 20040220
  Receipt Date: 20040220
  Transmission Date: 20041129
  Serious: Yes (Hospitalization)
  Sender: FDA-Public Use
  Company Number: None

PATIENT
  Sex: Male
  Weight: 91.6266 kg

DRUGS (9)
  1. LOPRESSOR [Suspect]
     Indication: CARDIAC FAILURE CONGESTIVE
     Dosage: 75 MG PO BID
     Route: 048
  2. LASIX [Concomitant]
  3. MONOPRIL [Concomitant]
  4. CARDURA [Concomitant]
  5. FLOMAX [Concomitant]
  6. ALLOPURINOL [Concomitant]
  7. HUMALOG [Concomitant]
  8. CARDIZEM CD [Concomitant]
  9. COMBIVENT [Concomitant]

REACTIONS (2)
  - DIZZINESS [None]
  - HEART RATE DECREASED [None]
